FAERS Safety Report 16973602 (Version 1)
Quarter: 2019Q4

REPORT INFORMATION
  Report Type: Spontaneous
  Country: US (occurrence: US)
  Receive Date: 20191030
  Receipt Date: 20191030
  Transmission Date: 20200122
  Serious: No
  Sender: FDA-Public Use
  Company Number: US-PFIZER INC-2019463794

PATIENT
  Age: 69 Year
  Sex: Female
  Weight: 63.5 kg

DRUGS (5)
  1. PANTOPRAZOLE [Concomitant]
     Active Substance: PANTOPRAZOLE
     Dosage: 40 MG, 2X/DAY
     Route: 048
     Dates: start: 20191023
  2. ADVIL [Suspect]
     Active Substance: IBUPROFEN
     Indication: TOOTHACHE
     Dosage: 600 MG, UNK (200MG TABLETS, TOOK 3 TABLETS EVERY 6 HOURS BY MOUTH)
     Route: 048
     Dates: start: 20191018, end: 20191022
  3. TURMERIC [CURCUMA LONGA RHIZOME] [Concomitant]
     Active Substance: HERBALS\TURMERIC
     Indication: PHYTOTHERAPY
     Dosage: 1000 MG, DAILY  (2 CAPSULES A DAY BY MOUTH )
     Route: 048
     Dates: end: 20191017
  4. TURMERIC [CURCUMA LONGA RHIZOME] [Concomitant]
     Active Substance: HERBALS\TURMERIC
     Dosage: 1000 MG, DAILY (2 CAPSULES A DAY BY MOUTH )
     Route: 048
     Dates: start: 20191023
  5. PANTOPRAZOLE [Concomitant]
     Active Substance: PANTOPRAZOLE
     Indication: GASTROOESOPHAGEAL REFLUX DISEASE
     Dosage: 40 MG, 2X/DAY(40MG TABLET, 1 TABLET TWICE A DAY BY MOUTH)
     Route: 048
     Dates: end: 20191017

REACTIONS (4)
  - Therapeutic product effect delayed [Recovered/Resolved]
  - Dizziness [Not Recovered/Not Resolved]
  - Facial pain [Unknown]
  - Feeling abnormal [Not Recovered/Not Resolved]

NARRATIVE: CASE EVENT DATE: 201910
